FAERS Safety Report 23042018 (Version 1)
Quarter: 2023Q4

REPORT INFORMATION
  Report Type: Report from Study
  Country: CA (occurrence: CA)
  Receive Date: 20231008
  Receipt Date: 20231008
  Transmission Date: 20240110
  Serious: Yes (Other)
  Sender: FDA-Public Use
  Company Number: CA-002147023-NVSC2022CA158090

PATIENT
  Age: 68 Year
  Sex: Male

DRUGS (3)
  1. HYRIMOZ [Suspect]
     Active Substance: ADALIMUMAB-ADAZ
     Indication: Crohn^s disease
     Dosage: 40 MG, QW
     Route: 058
     Dates: start: 20220219
  2. HYRIMOZ [Suspect]
     Active Substance: ADALIMUMAB-ADAZ
     Dosage: 40 MG, QW (1 EVERY 1 WEEKS)
     Route: 058
  3. HUMIRA [Concomitant]
     Active Substance: ADALIMUMAB
     Indication: Product used for unknown indication
     Dosage: UNK
     Route: 058

REACTIONS (8)
  - CNS ventriculitis [Recovered/Resolved]
  - Precancerous skin lesion [Recovered/Resolved]
  - Diarrhoea [Recovered/Resolved]
  - Induration [Recovered/Resolved]
  - Bowel movement irregularity [Recovered/Resolved]
  - Procedural site reaction [Recovered/Resolved]
  - Skin cancer [Recovered/Resolved]
  - Abdominal pain lower [Recovered/Resolved]

NARRATIVE: CASE EVENT DATE: 20220101
